FAERS Safety Report 13698937 (Version 2)
Quarter: 2017Q3

REPORT INFORMATION
  Report Type: Spontaneous
  Country: JP (occurrence: JP)
  Receive Date: 20170628
  Receipt Date: 20170707
  Transmission Date: 20171127
  Serious: Yes (Death)
  Sender: FDA-Public Use
  Company Number: JP-JNJFOC-20170625402

PATIENT
  Age: 85 Year
  Sex: Male

DRUGS (8)
  1. ANPLAG [Concomitant]
     Active Substance: SARPOGRELATE
     Route: 065
  2. XARELTO [Suspect]
     Active Substance: RIVAROXABAN
     Indication: CEREBROVASCULAR ACCIDENT PROPHYLAXIS
     Route: 048
     Dates: start: 20130213
  3. DOGMATYL [Concomitant]
     Active Substance: SULPIRIDE
     Route: 065
  4. ARTIST [Concomitant]
     Active Substance: CARVEDILOL
     Route: 065
  5. LASIX [Concomitant]
     Active Substance: FUROSEMIDE
     Route: 065
  6. DIGOSIN [Concomitant]
     Active Substance: DIGOXIN
     Route: 065
  7. RISPERDAL [Concomitant]
     Active Substance: RISPERIDONE
     Route: 065
  8. URIEF [Concomitant]
     Active Substance: SILODOSIN
     Route: 065

REACTIONS (1)
  - Pneumonia aspiration [Fatal]

NARRATIVE: CASE EVENT DATE: 20130328
